FAERS Safety Report 22713656 (Version 4)
Quarter: 2023Q4

REPORT INFORMATION
  Report Type: Spontaneous
  Country: US (occurrence: US)
  Receive Date: 20230717
  Receipt Date: 20231020
  Transmission Date: 20240110
  Serious: Yes (Other)
  Sender: FDA-Public Use
  Company Number: US-PFIZER INC-202300249512

PATIENT
  Age: 54 Year
  Sex: Female

DRUGS (3)
  1. OXBRYTA [Suspect]
     Active Substance: VOXELOTOR
     Indication: Sickle cell anaemia
     Dosage: 1500 MG, 1X/DAY
  2. FOLIC ACID [Concomitant]
     Active Substance: FOLIC ACID
     Indication: Sickle cell anaemia
     Dosage: UNK
  3. JADENU [Concomitant]
     Active Substance: DEFERASIROX
     Indication: Blood iron increased
     Dosage: UNK

REACTIONS (1)
  - Drug ineffective [Unknown]
